FAERS Safety Report 10989096 (Version 1)
Quarter: 2015Q2

REPORT INFORMATION
  Report Type: Spontaneous
  Country: JP (occurrence: JP)
  Receive Date: 20150406
  Receipt Date: 20150406
  Transmission Date: 20150821
  Serious: Yes (Death)
  Sender: FDA-Public Use
  Company Number: JP-ROCHE-1560232

PATIENT
  Sex: Male

DRUGS (37)
  1. ALDOMET [Concomitant]
     Active Substance: METHYLDOPA
     Route: 048
     Dates: start: 20131210, end: 20141114
  2. ATARAX-P [Concomitant]
     Active Substance: HYDROXYZINE HYDROCHLORIDE
     Route: 048
     Dates: start: 20130409, end: 201402
  3. JUSO [Concomitant]
     Indication: DIABETIC NEPHROPATHY
     Route: 048
     Dates: end: 20130426
  4. MIRCERA [Suspect]
     Active Substance: METHOXY POLYETHYLENE GLYCOL-EPOETIN BETA
     Indication: NEPHROGENIC ANAEMIA
     Route: 058
     Dates: start: 20131015, end: 20131112
  5. GRANDAXIN [Concomitant]
     Active Substance: TOFISOPAM
     Indication: DIABETIC NEPHROPATHY
     Route: 048
     Dates: end: 201402
  6. TAKEPRON [Concomitant]
     Active Substance: LANSOPRAZOLE
     Route: 048
     Dates: end: 20141114
  7. MIRCERA [Suspect]
     Active Substance: METHOXY POLYETHYLENE GLYCOL-EPOETIN BETA
     Indication: NEPHROGENIC ANAEMIA
     Route: 058
     Dates: start: 20131210, end: 20140204
  8. LASIX [Concomitant]
     Active Substance: FUROSEMIDE
     Route: 048
     Dates: end: 20141114
  9. ALDOMET [Concomitant]
     Active Substance: METHYLDOPA
     Route: 048
     Dates: start: 20140317, end: 2014
  10. MIRCERA [Suspect]
     Active Substance: METHOXY POLYETHYLENE GLYCOL-EPOETIN BETA
     Indication: NEPHROGENIC ANAEMIA
     Route: 058
     Dates: start: 20130305, end: 20130917
  11. MIRCERA [Suspect]
     Active Substance: METHOXY POLYETHYLENE GLYCOL-EPOETIN BETA
     Indication: NEPHROGENIC ANAEMIA
     Route: 058
     Dates: start: 20140328, end: 20140513
  12. MIRCERA [Suspect]
     Active Substance: METHOXY POLYETHYLENE GLYCOL-EPOETIN BETA
     Indication: NEPHROGENIC ANAEMIA
     Route: 058
     Dates: start: 20141114, end: 20141114
  13. ZYLORIC [Concomitant]
     Active Substance: ALLOPURINOL
     Route: 048
     Dates: end: 201402
  14. ALDOMET [Concomitant]
     Active Substance: METHYLDOPA
     Route: 048
  15. THYRADIN [Concomitant]
     Active Substance: LEVOTHYROXINE
     Route: 048
     Dates: start: 20140317, end: 2014
  16. BAYASPIRIN [Concomitant]
     Active Substance: ASPIRIN
     Route: 048
     Dates: end: 201402
  17. ALDOMET [Concomitant]
     Active Substance: METHYLDOPA
     Route: 048
     Dates: start: 20130820, end: 20131209
  18. MERISLON [Concomitant]
     Active Substance: BETAHISTINE MESILATE
     Route: 048
     Dates: end: 201402
  19. FRANDOL S [Concomitant]
     Indication: PROPHYLAXIS
     Dosage: WHOLE BODY (EXTERNAL APPLICATION OF SPREADING WHOLE BODY)
     Route: 062
     Dates: end: 201402
  20. ENALAPRIL [Concomitant]
     Active Substance: ENALAPRIL
     Indication: DIABETIC NEPHROPATHY
     Route: 048
     Dates: start: 201403, end: 20141114
  21. CATAPRES [Concomitant]
     Active Substance: CLONIDINE HYDROCHLORIDE
     Route: 048
     Dates: start: 201403, end: 20141114
  22. MIRCERA [Suspect]
     Active Substance: METHOXY POLYETHYLENE GLYCOL-EPOETIN BETA
     Indication: NEPHROGENIC ANAEMIA
     Route: 058
     Dates: start: 20140610, end: 20140812
  23. ADALAT CC [Concomitant]
     Active Substance: NIFEDIPINE
     Route: 048
     Dates: end: 201402
  24. METHYCOBAL [Concomitant]
     Active Substance: METHYLCOBALAMIN
     Indication: PROPHYLAXIS
     Route: 048
     Dates: end: 20130722
  25. FERROUS SULFATE [Concomitant]
     Active Substance: FERROUS SULFATE\FERROUS SULFATE, DRIED
     Indication: DIABETIC NEPHROPATHY
     Route: 048
     Dates: start: 201403, end: 20141114
  26. NIFESLOW [Concomitant]
     Route: 048
     Dates: start: 201403, end: 20141114
  27. TERNELIN [Concomitant]
     Active Substance: TIZANIDINE
     Route: 048
     Dates: end: 20130722
  28. OLMETEC [Concomitant]
     Active Substance: OLMESARTAN MEDOXOMIL
     Indication: DIABETIC NEPHROPATHY
     Route: 048
     Dates: end: 20141114
  29. CARDENALIN [Concomitant]
     Active Substance: DOXAZOSIN MESYLATE
     Route: 048
     Dates: start: 20140128, end: 20140210
  30. CARDENALIN [Concomitant]
     Active Substance: DOXAZOSIN MESYLATE
     Route: 048
     Dates: start: 20140211, end: 20141114
  31. DIART [Concomitant]
     Active Substance: AZOSEMIDE
     Indication: DIABETIC NEPHROPATHY
     Route: 048
     Dates: start: 201403, end: 2014
  32. AMLODIPINE [Concomitant]
     Active Substance: AMLODIPINE BESYLATE
     Route: 048
     Dates: start: 201403, end: 20141114
  33. MIRCERA [Suspect]
     Active Substance: METHOXY POLYETHYLENE GLYCOL-EPOETIN BETA
     Indication: NEPHROGENIC ANAEMIA
     Route: 058
     Dates: start: 20140908, end: 20141007
  34. ADALAT CC [Concomitant]
     Active Substance: NIFEDIPINE
     Indication: DIABETIC NEPHROPATHY
     Route: 048
  35. TRAZENTA [Concomitant]
     Active Substance: LINAGLIPTIN
     Indication: DIABETIC NEPHROPATHY
     Route: 048
     Dates: end: 20130722
  36. SAIKOKARYUKOTSUBOREITO [Concomitant]
     Active Substance: HERBALS
     Indication: PROPHYLAXIS
     Route: 048
     Dates: end: 201402
  37. KALIMATE [Concomitant]
     Active Substance: CALCIUM POLYSTYRENE SULFONATE
     Indication: DIABETIC NEPHROPATHY
     Route: 048
     Dates: end: 201402

REACTIONS (2)
  - Sepsis [Fatal]
  - Pneumonia [Fatal]
